FAERS Safety Report 4503062-6 (Version None)
Quarter: 2004Q4

REPORT INFORMATION
  Report Type: 
  Country: None (occurrence: None)
  Receive Date: 20041116
  Receipt Date: 20041116
  Transmission Date: 20050328
  Serious: Yes (Life-Threatening)
  Sender: FDA-Public Use
  Company Number: None

PATIENT
  Age: 56 Year
  Sex: Male
  Weight: 92.9874 kg

DRUGS (3)
  1. ERBITUX (CETUXIMAB) [Suspect]
     Indication: COLON CANCER STAGE III
     Dosage: 808 MG IV X 1
     Route: 042
     Dates: start: 20041101
  2. ZOFRAN [Concomitant]
  3. BENADRYL [Concomitant]

REACTIONS (4)
  - DYSPHAGIA [None]
  - FLUSHING [None]
  - INFUSION RELATED REACTION [None]
  - URTICARIA [None]
